FAERS Safety Report 4604849-1 (Version None)
Quarter: 2005Q1

REPORT INFORMATION
  Report Type: 
  Country: None (occurrence: None)
  Receive Date: 20050311
  Receipt Date: 20041202
  Transmission Date: 20050727
  Serious: Yes (Hospitalization, Disabling, Other)
  Sender: FDA-Public Use
  Company Number: PHEH2004US12848

PATIENT
  Age: 56 Year
  Sex: Female
  Weight: 69 kg

DRUGS (6)
  1. CELEBREX [Concomitant]
     Dosage: 200 MG, QD
     Route: 048
  2. ZYRTEC [Concomitant]
     Dosage: 10 MG, QD
     Route: 048
  3. ZOLOFT [Concomitant]
     Dosage: 50 MG, QHS
     Route: 048
  4. XANAX [Concomitant]
     Dosage: 0.5 MG, TID
     Route: 048
  5. SYNTHROID [Concomitant]
     Dosage: 0.1 MG, QD
     Route: 048
  6. LAMISIL [Suspect]
     Dosage: 250 MG, QD
     Route: 048
     Dates: start: 20040820, end: 20040901

REACTIONS (10)
  - ABASIA [None]
  - BLOOD DISORDER [None]
  - DRUG TOXICITY [None]
  - IMPAIRED DRIVING ABILITY [None]
  - OEDEMA PERIPHERAL [None]
  - ONYCHOMADESIS [None]
  - PAIN [None]
  - PETECHIAE [None]
  - RASH GENERALISED [None]
  - SKIN EXFOLIATION [None]
